FAERS Safety Report 10443862 (Version 3)
Quarter: 2015Q1

REPORT INFORMATION
  Report Type: Spontaneous
  Country: CA (occurrence: CA)
  Receive Date: 20140910
  Receipt Date: 20150119
  Transmission Date: 20150720
  Serious: Yes (Hospitalization)
  Sender: FDA-Public Use
  Company Number: CA-ROCHE-1459438

PATIENT
  Age: 53 Year
  Sex: Female

DRUGS (10)
  1. CETIRIZINE [Concomitant]
     Active Substance: CETIRIZINE HYDROCHLORIDE
  2. SOLU-MEDROL [Concomitant]
     Active Substance: METHYLPREDNISOLONE SODIUM SUCCINATE
  3. XOLAIR [Suspect]
     Active Substance: OMALIZUMAB
     Indication: CHRONIC SPONTANEOUS URTICARIA
     Route: 058
     Dates: start: 20130909, end: 20131209
  4. ALENDRONATE SODIUM. [Concomitant]
     Active Substance: ALENDRONATE SODIUM
  5. BENADRYL [Concomitant]
     Active Substance: DIPHENHYDRAMINE HYDROCHLORIDE
  6. ZANTAC [Concomitant]
     Active Substance: RANITIDINE HYDROCHLORIDE
  7. CANAKINUMAB [Suspect]
     Active Substance: CANAKINUMAB
     Indication: PRODUCT USED FOR UNKNOWN INDICATION
     Route: 065
     Dates: start: 20140110
  8. PREDNISOLONE. [Concomitant]
     Active Substance: PREDNISOLONE
  9. XOLAIR [Suspect]
     Active Substance: OMALIZUMAB
     Route: 058
  10. SINGULAIR [Concomitant]
     Active Substance: MONTELUKAST SODIUM

REACTIONS (11)
  - Swelling face [Unknown]
  - Nasal congestion [Unknown]
  - Fatigue [Unknown]
  - Swollen tongue [Unknown]
  - Palpitations [Unknown]
  - No therapeutic response [Unknown]
  - Overdose [Unknown]
  - Urticaria [Unknown]
  - Cough [Unknown]
  - Choking [Unknown]
  - Herpes zoster [Unknown]

NARRATIVE: CASE EVENT DATE: 20131021
